FAERS Safety Report 17962419 (Version 2)
Quarter: 2020Q3

REPORT INFORMATION
  Report Type: Spontaneous
  Country: US (occurrence: US)
  Receive Date: 20200630
  Receipt Date: 20200818
  Transmission Date: 20201103
  Serious: No
  Sender: FDA-Public Use
  Company Number: US-SA-2020SA166510

PATIENT

DRUGS (11)
  1. SERTRALINE [Concomitant]
     Active Substance: SERTRALINE HYDROCHLORIDE
  2. ASPIRIN [ACETYLSALICYLIC ACID] [Concomitant]
     Active Substance: ASPIRIN
  3. MACRODANTIN [Concomitant]
     Active Substance: NITROFURANTOIN
  4. FOLIC ACID. [Concomitant]
     Active Substance: FOLIC ACID
  5. AUBAGIO [Suspect]
     Active Substance: TERIFLUNOMIDE
     Indication: MULTIPLE SCLEROSIS
     Dosage: 14 MG, QD
     Route: 048
     Dates: start: 2016
  6. AMPYRA [Concomitant]
     Active Substance: DALFAMPRIDINE
  7. PROVIGIL [Concomitant]
     Active Substance: MODAFINIL
  8. VESICARE [Concomitant]
     Active Substance: SOLIFENACIN SUCCINATE
  9. VITAMIN D3 [Concomitant]
     Active Substance: CHOLECALCIFEROL
  10. DALFAMPRIDINE. [Suspect]
     Active Substance: DALFAMPRIDINE
  11. PENTOXYFYLLINE [Concomitant]
     Active Substance: PENTOXIFYLLINE

REACTIONS (7)
  - Malaise [Unknown]
  - Pain [Unknown]
  - Muscle spasms [Unknown]
  - Condition aggravated [Unknown]
  - Product dose omission issue [Unknown]
  - Arthralgia [Unknown]
  - Illness [Unknown]

NARRATIVE: CASE EVENT DATE: 202006
